FAERS Safety Report 18137253 (Version 4)
Quarter: 2020Q3

REPORT INFORMATION
  Report Type: Spontaneous
  Country: US (occurrence: US)
  Receive Date: 20200812
  Receipt Date: 20200901
  Transmission Date: 20201103
  Serious: Yes (Other)
  Sender: FDA-Public Use
  Company Number: US-ASTRAZENECA-2020SE99877

PATIENT
  Sex: Female

DRUGS (7)
  1. ALBUTEROL. [Concomitant]
     Active Substance: ALBUTEROL
  2. IPOTROPIUM [Concomitant]
  3. FASENRA [Suspect]
     Active Substance: BENRALIZUMAB
     Route: 058
     Dates: start: 20200728
  4. BUDESONIDE. [Suspect]
     Active Substance: BUDESONIDE
     Route: 055
  5. MONTELUKAST [Concomitant]
     Active Substance: MONTELUKAST SODIUM
  6. BABY ASPIRIN [Concomitant]
     Active Substance: ASPIRIN
  7. PERFOROMIST [Concomitant]
     Active Substance: FORMOTEROL FUMARATE DIHYDRATE

REACTIONS (17)
  - Weight increased [Unknown]
  - Therapeutic product effect variable [Unknown]
  - Injection site swelling [Unknown]
  - Nasal congestion [Unknown]
  - Secretion discharge [Unknown]
  - Injection site paraesthesia [Unknown]
  - Injection site nerve damage [Not Recovered/Not Resolved]
  - Injection site pain [Not Recovered/Not Resolved]
  - Carpal tunnel syndrome [Unknown]
  - Dizziness [Recovered/Resolved]
  - Hypersensitivity [Unknown]
  - Wrong technique in product usage process [Unknown]
  - Eosinophil count increased [Unknown]
  - Neuralgia [Unknown]
  - Pain in extremity [Unknown]
  - Cough [Unknown]
  - Mobility decreased [Not Recovered/Not Resolved]
